FAERS Safety Report 16939488 (Version 2)
Quarter: 2020Q3

REPORT INFORMATION
  Report Type: Report from Study
  Country: GB (occurrence: GB)
  Receive Date: 20191021
  Receipt Date: 20200707
  Transmission Date: 20201102
  Serious: Yes (Hospitalization)
  Sender: FDA-Public Use
  Company Number: GB-ROCHE-2437605

PATIENT
  Sex: Female

DRUGS (1)
  1. ROACTEMRA [Suspect]
     Active Substance: TOCILIZUMAB
     Indication: RHEUMATOID ARTHRITIS
     Route: 058
     Dates: start: 201902

REACTIONS (11)
  - Balance disorder [Unknown]
  - Lower limb fracture [Unknown]
  - Joint swelling [Unknown]
  - Fall [Unknown]
  - Pallor [Unknown]
  - Diabetes mellitus inadequate control [Unknown]
  - General physical health deterioration [Unknown]
  - Anaemia [Unknown]
  - Illness [Unknown]
  - Arthralgia [Unknown]
  - Blood test abnormal [Unknown]
